FAERS Safety Report 9421303 (Version 3)
Quarter: 2013Q4

REPORT INFORMATION
  Report Type: Spontaneous
  Country: FR (occurrence: FR)
  Receive Date: 20130725
  Receipt Date: 20131003
  Transmission Date: 20140711
  Serious: Yes (Hospitalization)
  Sender: FDA-Public Use
  Company Number: FR-PFIZER INC-2013208078

PATIENT
  Age: 84 Year
  Sex: Female

DRUGS (4)
  1. LYRICA [Suspect]
     Indication: SCIATICA
     Dosage: 50 MG, 2X/DAY
     Route: 048
     Dates: start: 20130614, end: 20130625
  2. EUPANTOL [Suspect]
     Dosage: 20 MG, DAILY
     Route: 048
     Dates: start: 20130614
  3. FORSTEO [Suspect]
     Indication: OSTEOPOROSIS
     Dosage: 1 DF, 1X/DAY, 20 MCG/80 MCL
     Route: 058
     Dates: start: 20130614
  4. CACIT VITAMINE D3 [Suspect]
     Indication: OSTEOPOROSIS
     Dosage: 1 DF, 1X/DAY
     Route: 048
     Dates: start: 20130614

REACTIONS (1)
  - Skin exfoliation [Not Recovered/Not Resolved]
